FAERS Safety Report 17100443 (Version 1)
Quarter: 2019Q4

REPORT INFORMATION
  Report Type: Spontaneous
  Country: US (occurrence: US)
  Receive Date: 20191202
  Receipt Date: 20191202
  Transmission Date: 20200122
  Serious: Yes (Other)
  Sender: FDA-Public Use
  Company Number: US-TEVA-2019-US-1142498

PATIENT
  Age: 58 Year
  Sex: Male

DRUGS (6)
  1. LIPITOR [Concomitant]
     Active Substance: ATORVASTATIN CALCIUM
  2. METOPROLOL. [Concomitant]
     Active Substance: METOPROLOL
  3. CLOZAPINE TEVA [Suspect]
     Active Substance: CLOZAPINE
     Indication: SCHIZOPHRENIA
     Dosage: 100 MILLIGRAM DAILY; 100MG QAM
     Route: 065
     Dates: start: 201911
  4. CLOZAPINE TEVA [Suspect]
     Active Substance: CLOZAPINE
     Dosage: 300 MILLIGRAM DAILY; 300MG QPM
     Route: 065
     Dates: start: 201911
  5. ATIVAN [Concomitant]
     Active Substance: LORAZEPAM
  6. INSULIN [Concomitant]
     Active Substance: INSULIN NOS

REACTIONS (1)
  - Lung neoplasm malignant [Unknown]
